FAERS Safety Report 6878282-6 (Version None)
Quarter: 2010Q3

REPORT INFORMATION
  Report Type: 
  Country: None (occurrence: None)
  Receive Date: 20100728
  Receipt Date: 20100719
  Transmission Date: 20110219
  Serious: Yes (Other)
  Sender: FDA-Public Use
  Company Number: DE-PFIZER INC-2010083487

PATIENT
  Age: 30 Year
  Sex: Female
  Weight: 66.8 kg

DRUGS (1)
  1. SOMAVERT [Suspect]
     Indication: ACROMEGALY
     Dosage: 10 MG, 1X/DAY
     Route: 058
     Dates: start: 20100614, end: 20100628

REACTIONS (4)
  - HEADACHE [None]
  - NECK PAIN [None]
  - NUCHAL RIGIDITY [None]
  - SLEEP DISORDER [None]
